FAERS Safety Report 4281745-3 (Version None)
Quarter: 2004Q1

REPORT INFORMATION
  Report Type: 
  Country: None (occurrence: None)
  Receive Date: 20040128
  Receipt Date: 20040113
  Transmission Date: 20041129
  Serious: Yes (Life-Threatening, Hospitalization)
  Sender: FDA-Public Use
  Company Number: RENA-10861

PATIENT
  Age: 72 Year

DRUGS (1)
  1. PHOSBLOCK- 250 MG TABLET [Suspect]
     Indication: HYPERPHOSPHATAEMIA
     Dosage: 0.75 G QD PO
     Route: 048

REACTIONS (2)
  - INTESTINAL HAEMORRHAGE [None]
  - PYREXIA [None]
